FAERS Safety Report 4736348-0 (Version None)
Quarter: 2005Q3

REPORT INFORMATION
  Report Type: 
  Country: None (occurrence: None)
  Receive Date: 20050805
  Receipt Date: 20050805
  Transmission Date: 20060218
  Serious: Yes (Hospitalization, Other)
  Sender: FDA-Public Use
  Company Number: None

PATIENT
  Sex: Male
  Weight: 59 kg

DRUGS (3)
  1. CISPLATIN [Suspect]
     Indication: NEOPLASM
     Dosage: SEE IMAGE
     Route: 042
     Dates: start: 20050606, end: 20050627
  2. CISPLATIN [Suspect]
     Indication: NEOPLASM
     Dosage: SEE IMAGE
     Route: 042
     Dates: start: 20050627
  3. RADIATION [Suspect]
     Dosage: SEE IMAGE

REACTIONS (1)
  - PNEUMONIA ASPIRATION [None]
